FAERS Safety Report 22284870 (Version 1)
Quarter: 2023Q2

REPORT INFORMATION
  Report Type: Report from Study
  Country: BR (occurrence: BR)
  Receive Date: 20230504
  Receipt Date: 20230504
  Transmission Date: 20230722
  Serious: Yes (Hospitalization)
  Sender: FDA-Public Use
  Company Number: BR-BIOGEN-2023BI01202109

PATIENT
  Sex: Female
  Weight: 109 kg

DRUGS (2)
  1. TYSABRI [Suspect]
     Active Substance: NATALIZUMAB
     Indication: Multiple sclerosis
     Route: 050
     Dates: start: 202201, end: 20230404
  2. Labyrin (betahistine) [Concomitant]
     Indication: Dizziness
     Dosage: WHEN NEEDED
     Route: 050
     Dates: start: 2022

REACTIONS (1)
  - Treatment failure [Not Recovered/Not Resolved]
